FAERS Safety Report 4876248-9 (Version None)
Quarter: 2006Q1

REPORT INFORMATION
  Report Type: 
  Country: None (occurrence: None)
  Receive Date: 20060106
  Receipt Date: 20060106
  Transmission Date: 20060701
  Serious: Yes (Hospitalization)
  Sender: FDA-Public Use
  Company Number: GXKR2005US02221

PATIENT
  Age: 53 Year
  Sex: Male

DRUGS (6)
  1. CEFTRIAXONE [Suspect]
     Indication: MENINGITIS
     Dosage: 2 G, Q12H, INTRAVENOUS
     Route: 042
  2. AZITHROMYCIN [Suspect]
     Dosage: 500 MG, QD, INTRAVENOUS
     Route: 042
  3. CLINDAMYCIN [Suspect]
     Dosage: 600 MG, Q8H, INTRAVENOUS
     Route: 042
  4. PHENYTOIN SODIUM CAP [Suspect]
  5. VANCOMYCIN [Concomitant]
  6. AMPICILLIN SODIUM [Concomitant]

REACTIONS (2)
  - CHOLELITHIASIS [None]
  - JAUNDICE [None]
